FAERS Safety Report 5485169-2 (Version None)
Quarter: 2007Q4

REPORT INFORMATION
  Report Type: 
  Country: None (occurrence: None)
  Receive Date: 20071015
  Receipt Date: 20071011
  Transmission Date: 20080405
  Serious: Yes (Death)
  Sender: FDA-Public Use
  Company Number: PHEH2007US10824

PATIENT
  Age: 58 Year
  Sex: Female
  Weight: 164.17 kg

DRUGS (6)
  1. TEKTURNA [Suspect]
     Indication: HYPERTENSION
     Dosage: 150 MG, QD
     Route: 048
     Dates: start: 20070724
  2. FORTAMET [Concomitant]
     Indication: DIABETES MELLITUS
     Dosage: 1000 MG, BID
     Dates: start: 20070515
  3. JANUVIA [Concomitant]
     Indication: DIABETES MELLITUS
     Dosage: 50 MG, QD
     Dates: start: 20070724
  4. AVALIDE [Concomitant]
     Indication: HYPERTENSION
     Dosage: 300/25 DAILY
     Dates: start: 20070515
  5. LASIX [Concomitant]
     Indication: OEDEMA
     Dosage: 40 MG, UNK
     Dates: start: 20010101
  6. FLONASE [Concomitant]
     Indication: RHINITIS ALLERGIC
     Dosage: 2 SPRAYS PRN
     Dates: start: 20041116

REACTIONS (3)
  - ARRHYTHMIA [None]
  - DEATH [None]
  - UNRESPONSIVE TO STIMULI [None]
